FAERS Safety Report 7416230-0 (Version None)
Quarter: 2011Q2

REPORT INFORMATION
  Report Type: 
  Country: None (occurrence: None)
  Receive Date: 20110414
  Receipt Date: 20110414
  Transmission Date: 20111010
  Serious: Yes (Hospitalization, Other)
  Sender: FDA-Public Use
  Company Number: PL-PFIZER INC-2011076075

PATIENT
  Age: 46 Year
  Sex: Male
  Weight: 97 kg

DRUGS (9)
  1. MIRTAZAPINE [Concomitant]
     Indication: BIPOLAR DISORDER
     Dosage: UNK
     Dates: start: 20050101
  2. CITALOPRAM [Concomitant]
     Indication: BIPOLAR DISORDER
     Dosage: UNK
     Dates: start: 20050101
  3. ALPRAZOLAM [Suspect]
  4. AMLODIPINE [Concomitant]
     Indication: HYPERTENSION
     Dosage: 10 MG, UNK
  5. LITHIUM CARBONATE [Concomitant]
     Indication: BIPOLAR DISORDER
     Dosage: UNK
     Dates: start: 20050101
  6. METFORMIN HYDROCHLORIDE [Concomitant]
     Indication: TYPE 2 DIABETES MELLITUS
     Dosage: UNK
  7. CILAZAPRIL [Concomitant]
     Indication: HYPERTENSION
     Dosage: 5 MG, UNK
  8. FUROSEMIDE [Concomitant]
     Indication: HYPERTENSION
     Dosage: 40 MG, UNK
  9. DEPAKENE [Concomitant]
     Indication: BIPOLAR DISORDER
     Dosage: UNK
     Dates: start: 20050101

REACTIONS (8)
  - SUICIDE ATTEMPT [None]
  - BIPOLAR DISORDER [None]
  - OVERDOSE [None]
  - ASTHENIA [None]
  - ALTERED STATE OF CONSCIOUSNESS [None]
  - HYPERTENSION [None]
  - DEPRESSION [None]
  - TYPE 2 DIABETES MELLITUS [None]
